FAERS Safety Report 25655787 (Version 1)
Quarter: 2025Q3

REPORT INFORMATION
  Report Type: Spontaneous
  Country: SA (occurrence: SA)
  Receive Date: 20250807
  Receipt Date: 20250807
  Transmission Date: 20251021
  Serious: Yes (Hospitalization, Other)
  Sender: AMGEN
  Company Number: SA-AMGEN-SAUSP2025153736

PATIENT

DRUGS (1)
  1. ADALIMUMAB [Suspect]
     Active Substance: ADALIMUMAB
     Indication: Rheumatoid arthritis
     Route: 065

REACTIONS (10)
  - Lung abscess [Unknown]
  - Urinary tract infection [Unknown]
  - Pneumonia [Unknown]
  - Herpes zoster [Unknown]
  - Rheumatoid arthritis [Unknown]
  - Adverse drug reaction [Unknown]
  - Pain [Unknown]
  - Cardiovascular disorder [Unknown]
  - Adverse event [Unknown]
  - Chronic disease [Unknown]
